FAERS Safety Report 7501414-3 (Version None)
Quarter: 2011Q2

REPORT INFORMATION
  Report Type: 
  Country: None (occurrence: None)
  Receive Date: 20110524
  Receipt Date: 20110513
  Transmission Date: 20111010
  Serious: Yes (Congenital Anomaly, Other)
  Sender: FDA-Public Use
  Company Number: FR-PFIZER INC-2010006270

PATIENT
  Sex: Female
  Weight: 7.3 kg

DRUGS (14)
  1. PRAZEPAM [Suspect]
     Dosage: 1 DF, 3X/DAY
     Route: 064
     Dates: end: 20090401
  2. OROCAL [Concomitant]
     Dosage: 500 ONCE DAILY
  3. LYRICA [Suspect]
     Dosage: 1 DF, 3X/DAY
     Route: 064
     Dates: end: 20090401
  4. TERCIAN [Suspect]
     Dosage: UNK
     Route: 064
  5. CITALOPRAM HYDROBROMIDE [Suspect]
     Dosage: UNK
     Route: 064
     Dates: start: 20090401
  6. ACETAMINOPHEN [Concomitant]
  7. INSULIN GLULISINE [Concomitant]
     Dosage: UNK
  8. OLMESARTAN MEDOXOMIL [Suspect]
     Dosage: UNK
     Route: 064
     Dates: end: 20090401
  9. DOXIUM [Suspect]
     Dosage: 1 DF, 3X/DAY
     Route: 064
     Dates: end: 20090401
  10. DICYNONE [Suspect]
     Dosage: 1 DF, 1X/DAY
     Route: 064
     Dates: end: 20090401
  11. DEXERYL ^PIERRE FABRE^ [Concomitant]
  12. ANAFRANIL [Concomitant]
  13. NOVORAPID [Concomitant]
  14. PAROXETINE HCL [Suspect]
     Dosage: 1 DF, 2X/DAY
     Route: 064
     Dates: end: 20090401

REACTIONS (5)
  - CONGENITAL MUSCULOSKELETAL ANOMALY [None]
  - ATRIAL SEPTAL DEFECT [None]
  - MATERNAL DRUGS AFFECTING FOETUS [None]
  - PREMATURE BABY [None]
  - DRUG EXPOSURE DURING PREGNANCY [None]
